FAERS Safety Report 26187019 (Version 1)
Quarter: 2025Q4

REPORT INFORMATION
  Report Type: Spontaneous
  Country: US (occurrence: US)
  Receive Date: 20251222
  Receipt Date: 20251222
  Transmission Date: 20260119
  Serious: No
  Sender: ROCHE
  Company Number: US-ROCHE-10000460182

PATIENT
  Age: 49 Year
  Sex: Female
  Weight: 62.14 kg

DRUGS (4)
  1. XOLAIR [Suspect]
     Active Substance: OMALIZUMAB
     Indication: Hypersensitivity
     Route: 058
     Dates: start: 2024
  2. XOLAIR [Suspect]
     Active Substance: OMALIZUMAB
     Indication: Rash
  3. XOLAIR [Suspect]
     Active Substance: OMALIZUMAB
     Indication: Urticaria
  4. CLARITIN [Concomitant]
     Active Substance: LORATADINE
     Indication: Pruritus

REACTIONS (3)
  - Product dose omission issue [Unknown]
  - No adverse event [Unknown]
  - Device issue [Unknown]

NARRATIVE: CASE EVENT DATE: 20251212
